FAERS Safety Report 8852628 (Version 2)
Quarter: 2013Q2

REPORT INFORMATION
  Report Type: Spontaneous
  Country: US (occurrence: US)
  Receive Date: 20121022
  Receipt Date: 20130418
  Transmission Date: 20140414
  Serious: No
  Sender: FDA-Public Use
  Company Number: US-ASTRAZENECA-2012SE77564

PATIENT
  Age: 74 Year
  Sex: Female
  Weight: 102.1 kg

DRUGS (7)
  1. SYMBICORT [Suspect]
     Indication: ASTHMA
     Dosage: 80 MG TWO SPRAYS BID
     Route: 055
  2. CRESTOR [Suspect]
     Indication: BLOOD CHOLESTEROL ABNORMAL
     Route: 048
  3. RAMIPRIL [Concomitant]
     Indication: BLOOD PRESSURE ABNORMAL
  4. FUROSEMIDE [Concomitant]
     Indication: PERICARDIAL EFFUSION
  5. CITALOPRAM [Concomitant]
     Indication: DEPRESSION
  6. CARVEDILOL [Concomitant]
     Indication: BLOOD PRESSURE ABNORMAL
  7. FLUTICASONE [Concomitant]
     Indication: HYPERSENSITIVITY

REACTIONS (6)
  - Mobility decreased [Unknown]
  - Limb discomfort [Unknown]
  - Asthma [Unknown]
  - Abdominal pain [Unknown]
  - Pain in extremity [Unknown]
  - Intentional drug misuse [Unknown]
